FAERS Safety Report 23061798 (Version 1)
Quarter: 2023Q4

REPORT INFORMATION
  Report Type: Spontaneous
  Country: DE (occurrence: DE)
  Receive Date: 20231013
  Receipt Date: 20231013
  Transmission Date: 20240110
  Serious: Yes (Congenital Anomaly, Other)
  Sender: FDA-Public Use
  Company Number: DE-EMBRYOTOX-202207117

PATIENT
  Age: 1 Day
  Sex: Female
  Weight: 3.79 kg

DRUGS (2)
  1. LAMOTRIGINE [Suspect]
     Active Substance: LAMOTRIGINE
     Indication: Epilepsy
     Dosage: 350 MILLIGRAM, ONCE A DAY (INITIALLY 300 MG/D, INCREASED IN THE COURSE OF PREGNANCY TO 350 MG/D) (0.
     Route: 064
     Dates: start: 20220512, end: 20230218
  2. BRIVARACETAM [Suspect]
     Active Substance: BRIVARACETAM
     Indication: Epilepsy
     Dosage: 125 MILLIGRAM, ONCE A DAY (INITIALLY 100 MG/D, AROUND GW 4.6 INCREASED TO 125 MG/D) (0. - 40.2. GEST
     Route: 064
     Dates: start: 20220512, end: 20230218

REACTIONS (3)
  - Cardiac septal defect [Not Recovered/Not Resolved]
  - Atrial septal defect [Recovered/Resolved]
  - Foetal exposure during pregnancy [Unknown]

NARRATIVE: CASE EVENT DATE: 20230201
